FAERS Safety Report 6244955-1 (Version None)
Quarter: 2009Q2

REPORT INFORMATION
  Report Type: 
  Country: None (occurrence: None)
  Receive Date: 20090623
  Receipt Date: 20090623
  Transmission Date: 20091009
  Serious: Yes (Other)
  Sender: FDA-Public Use
  Company Number: None

PATIENT
  Sex: Female
  Weight: 66.2252 kg

DRUGS (2)
  1. PEGASYS [Suspect]
     Indication: HEPATITIS C
     Dosage: 180 MCG/ 0.5ML WEEKLY SQ
     Route: 058
     Dates: start: 20090310, end: 20090410
  2. RIBAVIRIN [Suspect]
     Indication: HEPATITIS C
     Dosage: 200 MG 2 POAM / 3PO PM PO
     Route: 048
     Dates: start: 20090310, end: 20090410

REACTIONS (1)
  - NEPHROLITHIASIS [None]
